FAERS Safety Report 23544013 (Version 1)
Quarter: 2024Q1

REPORT INFORMATION
  Report Type: Spontaneous
  Country: US (occurrence: None)
  Receive Date: 20240216
  Receipt Date: 20240216
  Transmission Date: 20240410
  Serious: Yes (Other)
  Sender: FDA-Public Use
  Company Number: None

PATIENT
  Age: 29 Year
  Sex: Female
  Weight: 69.75 kg

DRUGS (4)
  1. WEGOVY [Suspect]
     Active Substance: SEMAGLUTIDE
     Indication: Obesity
     Dosage: OTHER FREQUENCY : ONCE WEEKLY;?
     Route: 058
     Dates: start: 20230224
  2. Adderall XR 30 mg (generic) [Concomitant]
     Dates: start: 20240112
  3. METHOCARBAMOL [Concomitant]
     Active Substance: METHOCARBAMOL
  4. diclofenac sodium 50 mg DR [Concomitant]
     Dates: start: 20240216

REACTIONS (4)
  - Greater trochanteric pain syndrome [None]
  - Piriformis syndrome [None]
  - Arthralgia [None]
  - Back pain [None]

NARRATIVE: CASE EVENT DATE: 20230516
